FAERS Safety Report 25337092 (Version 2)
Quarter: 2025Q2

REPORT INFORMATION
  Report Type: Spontaneous
  Country: JP (occurrence: JP)
  Receive Date: 20250520
  Receipt Date: 20250606
  Transmission Date: 20250717
  Serious: Yes (Death, Hospitalization, Other)
  Sender: AMGEN
  Company Number: JP-KISSEI-TV20250280_P_1

PATIENT
  Age: 9 Decade
  Sex: Male
  Weight: 55.7 kg

DRUGS (8)
  1. TAVNEOS [Suspect]
     Active Substance: AVACOPAN
     Indication: Anti-neutrophil cytoplasmic antibody positive vasculitis
     Dosage: 60 MG, QD
     Route: 048
     Dates: start: 20250113, end: 20250311
  2. LYRICA [Suspect]
     Active Substance: PREGABALIN
     Indication: Product used for unknown indication
     Route: 048
  3. TRAMCET [Suspect]
     Active Substance: ACETAMINOPHEN\TRAMADOL
     Indication: Product used for unknown indication
     Route: 065
  4. ATOVAQUONE [Concomitant]
     Active Substance: ATOVAQUONE
     Indication: Antifungal prophylaxis
     Dosage: 1500 MG, QD
     Route: 048
     Dates: start: 20250310, end: 20250405
  5. BOS TAURUS ADRENAL CORTEX CORTICOSTEROIDS [Concomitant]
     Active Substance: BOS TAURUS ADRENAL CORTEX CORTICOSTEROIDS
     Indication: Anti-neutrophil cytoplasmic antibody positive vasculitis
     Dosage: 15 MG, QD
     Route: 065
     Dates: start: 20241204, end: 20250112
  6. BOS TAURUS ADRENAL CORTEX CORTICOSTEROIDS [Concomitant]
     Active Substance: BOS TAURUS ADRENAL CORTEX CORTICOSTEROIDS
     Dosage: 25 MG, QD
     Route: 065
     Dates: start: 20250112, end: 20250113
  7. CYCLOPHOSPHAMIDE [Concomitant]
     Active Substance: CYCLOPHOSPHAMIDE
     Indication: Anti-neutrophil cytoplasmic antibody positive vasculitis
     Dosage: 400 MG, QD
     Route: 065
     Dates: start: 20250114, end: 20250114
  8. CYCLOPHOSPHAMIDE [Concomitant]
     Active Substance: CYCLOPHOSPHAMIDE
     Dosage: 400 MG, QD
     Route: 065
     Dates: start: 20250128, end: 20250128

REACTIONS (5)
  - Pulmonary toxicity [Fatal]
  - Pulmonary fibrosis [Fatal]
  - Septic shock [Fatal]
  - Pyrexia [Fatal]
  - Dyspnoea exertional [Fatal]

NARRATIVE: CASE EVENT DATE: 20250101
